FAERS Safety Report 14229770 (Version 1)
Quarter: 2017Q4

REPORT INFORMATION
  Report Type: Spontaneous
  Country: US (occurrence: US)
  Receive Date: 20171128
  Receipt Date: 20171128
  Transmission Date: 20180321
  Serious: Yes (Congenital Anomaly)
  Sender: FDA-Public Use
  Company Number: US-ANTARES PHARMA, INC.-2016-LIT-ME-0346

PATIENT
  Age: 34 Week
  Sex: Female
  Weight: 1.25 kg

DRUGS (1)
  1. METHOTREXATE. [Suspect]
     Active Substance: METHOTREXATE

REACTIONS (16)
  - Deformity of orbit [Recovered/Resolved]
  - Macrognathia [Recovered/Resolved]
  - Chondropathy [Unknown]
  - Labia enlarged [Unknown]
  - Nose deformity [Recovered/Resolved]
  - Craniosynostosis [Recovered/Resolved]
  - Head deformity [Recovered/Resolved]
  - Finger deformity [Unknown]
  - Foot deformity [Unknown]
  - Exposure during pregnancy [Recovered/Resolved]
  - Deformity [Unknown]
  - High arched palate [Recovered/Resolved]
  - Ear disorder [Unknown]
  - Fontanelle bulging [Recovered/Resolved]
  - Low set ears [Recovered/Resolved]
  - Retrognathia [Recovered/Resolved]
